FAERS Safety Report 8171933-8 (Version None)
Quarter: 2012Q1

REPORT INFORMATION
  Report Type: 
  Country: None (occurrence: None)
  Receive Date: 20120228
  Receipt Date: 20120218
  Transmission Date: 20120608
  Serious: Yes (Hospitalization)
  Sender: FDA-Public Use
  Company Number: BD-ROCHE-301907

PATIENT
  Sex: Male
  Weight: 61 kg

DRUGS (3)
  1. PEGINTERFERON ALFA-2A [Suspect]
     Indication: HEPATITIS C
     Route: 058
     Dates: start: 20010412, end: 20011014
  2. PROPRANOLOL HYDROCHLORIDE [Concomitant]
  3. PEGINTERFERON ALFA-2A [Suspect]
     Route: 058
     Dates: start: 20011014, end: 20011021

REACTIONS (1)
  - THALASSAEMIA TRAIT [None]
